FAERS Safety Report 19993873 (Version 1)
Quarter: 2021Q4

REPORT INFORMATION
  Report Type: Spontaneous
  Country: US (occurrence: US)
  Receive Date: 20211026
  Receipt Date: 20211026
  Transmission Date: 20220303
  Serious: No
  Sender: FDA-Public Use
  Company Number: US-TEVA-2021-US-1967407

PATIENT
  Sex: Female

DRUGS (1)
  1. QVAR REDIHALER [Suspect]
     Active Substance: BECLOMETHASONE DIPROPIONATE
     Route: 055

REACTIONS (10)
  - Dyspnoea [Unknown]
  - Chest pain [Unknown]
  - Chest discomfort [Unknown]
  - Dizziness [Unknown]
  - Fatigue [Unknown]
  - Disturbance in attention [Unknown]
  - Device ineffective [Unknown]
  - Product quality issue [Unknown]
  - Incorrect dose administered by device [Unknown]
  - Device issue [Unknown]
